FAERS Safety Report 8340168-8 (Version None)
Quarter: 2012Q2

REPORT INFORMATION
  Report Type: 
  Country: None (occurrence: None)
  Receive Date: 20120507
  Receipt Date: 20120206
  Transmission Date: 20120825
  Serious: No
  Sender: FDA-Public Use
  Company Number: US-ASTRAZENECA-2012SE08223

PATIENT
  Age: 60 Year
  Sex: Male
  Weight: 141.5 kg

DRUGS (2)
  1. VIMOVO [Suspect]
     Indication: ABDOMINAL DISCOMFORT
     Dosage: 375 MILLIGRAMS / 20 MILLIGRAMS TWO TIMES DAILY, TOTAL DAILY DOSE: 375 MILLIGRAMS / 20 MILLIGRAMS
     Route: 048
     Dates: start: 20110907, end: 20111101
  2. VIMOVO [Suspect]
     Indication: OSTEOARTHRITIS
     Dosage: 375 MILLIGRAMS / 20 MILLIGRAMS TWO TIMES DAILY, TOTAL DAILY DOSE: 375 MILLIGRAMS / 20 MILLIGRAMS
     Route: 048
     Dates: start: 20110907, end: 20111101

REACTIONS (6)
  - DRUG EFFECT DECREASED [None]
  - MALAISE [None]
  - WEIGHT ABNORMAL [None]
  - VOMITING [None]
  - OESOPHAGEAL ULCER [None]
  - GASTRIC ULCER [None]
